FAERS Safety Report 6725764-3 (Version None)
Quarter: 2010Q2

REPORT INFORMATION
  Report Type: 
  Country: None (occurrence: None)
  Receive Date: 20100514
  Receipt Date: 20100503
  Transmission Date: 20101027
  Serious: Yes (Hospitalization)
  Sender: FDA-Public Use
  Company Number: US-SANOFI-AVENTIS-2010SA025796

PATIENT
  Age: 62 Year
  Sex: Male

DRUGS (5)
  1. LANTUS [Suspect]
     Dosage: DOSE:65 UNIT(S)
     Route: 058
     Dates: start: 20080101
  2. APIDRA [Suspect]
     Route: 058
     Dates: start: 20080101
  3. OPTICLICK [Suspect]
     Dates: start: 20080101
  4. OPTICLICK [Suspect]
     Dates: start: 20080101
  5. OPTICLICK [Suspect]
     Dates: start: 20080101

REACTIONS (4)
  - BLOOD GLUCOSE INCREASED [None]
  - GASTROENTERITIS VIRAL [None]
  - HOSPITALISATION [None]
  - MALAISE [None]
